FAERS Safety Report 10057608 (Version 1)
Quarter: 2014Q2

REPORT INFORMATION
  Report Type: Spontaneous
  Country: US (occurrence: US)
  Receive Date: 20140404
  Receipt Date: 20140404
  Transmission Date: 20141212
  Serious: Yes (Death)
  Sender: FDA-Public Use
  Company Number: US-BEH-2014041662

PATIENT
  Age: 21 Year
  Sex: Male

DRUGS (1)
  1. IVIG [Suspect]
     Indication: HAEMOLYSIS

REACTIONS (2)
  - Drug ineffective for unapproved indication [Fatal]
  - Drug ineffective for unapproved indication [Unknown]
